FAERS Safety Report 14975014 (Version 2)
Quarter: 2018Q3

REPORT INFORMATION
  Report Type: Spontaneous
  Country: DE (occurrence: DE)
  Receive Date: 20180605
  Receipt Date: 20180713
  Transmission Date: 20181010
  Serious: Yes (Hospitalization)
  Sender: FDA-Public Use
  Company Number: DE-PFIZER INC-2018225639

PATIENT
  Age: 59 Year
  Sex: Female

DRUGS (3)
  1. DICLOFENAC [Suspect]
     Active Substance: DICLOFENAC
     Dosage: 3 X /WEEK
  2. IBUPROFEN. [Suspect]
     Active Substance: IBUPROFEN
     Dosage: 600 MG, 3 X /WEEK
  3. MARCUMAR [Suspect]
     Active Substance: PHENPROCOUMON
     Dosage: 3 MG, DUE TO INR

REACTIONS (7)
  - Dyspnoea [Unknown]
  - Dizziness [Unknown]
  - Anaemia [Unknown]
  - General physical health deterioration [Unknown]
  - Drug prescribing error [Unknown]
  - Haematochezia [Unknown]
  - Medication monitoring error [Unknown]
